FAERS Safety Report 8790408 (Version 1)
Quarter: 2012Q4

REPORT INFORMATION
  Report Type: Report from Study
  Country: CA (occurrence: CA)
  Receive Date: 20120917
  Receipt Date: 20120917
  Transmission Date: 20130627
  Serious: Yes (Other)
  Sender: FDA-Public Use
  Company Number: CA-JNJFOC-20120902396

PATIENT
  Age: 22 Year
  Sex: Female
  Weight: 86.3 kg

DRUGS (4)
  1. REMICADE [Suspect]
     Indication: CROHN^S DISEASE
     Dosage: once in week 2 and week 6
     Route: 042
  2. RANITIDINE [Concomitant]
     Route: 065
  3. CORTISONE [Concomitant]
     Indication: ECZEMA
     Route: 065
  4. IRON [Concomitant]
     Route: 065

REACTIONS (2)
  - Infection [Unknown]
  - Haemorrhoid operation [Unknown]
